FAERS Safety Report 5599400-6 (Version None)
Quarter: 2007Q4

REPORT INFORMATION
  Report Type: 
  Country: None (occurrence: None)
  Receive Date: 20071226
  Receipt Date: 20071128
  Transmission Date: 20080405
  Serious: No
  Sender: FDA-Public Use
  Company Number: 2007PV033777

PATIENT
  Age: 28 Year
  Sex: Female
  Weight: 84.8226 kg

DRUGS (7)
  1. SYMLIN [Suspect]
     Indication: TYPE 2 DIABETES MELLITUS
     Dosage: 120, 30 MCG, TID, SC
     Route: 058
     Dates: start: 20070101, end: 20070101
  2. SYMLIN [Suspect]
     Indication: TYPE 2 DIABETES MELLITUS
     Dosage: 120, 30 MCG, TID, SC
     Route: 058
     Dates: start: 20070101
  3. HUMALOG [Concomitant]
  4. HUMULIN N [Concomitant]
  5. ZOLOFT [Concomitant]
  6. PRILOSEC [Concomitant]
  7. ZANTAC [Concomitant]

REACTIONS (3)
  - DEPRESSION [None]
  - DYSPEPSIA [None]
  - FATIGUE [None]
